FAERS Safety Report 20057407 (Version 1)
Quarter: 2021Q4

REPORT INFORMATION
  Report Type: Spontaneous
  Country: AU (occurrence: AU)
  Receive Date: 20211111
  Receipt Date: 20211111
  Transmission Date: 20220303
  Serious: Yes (Other)
  Sender: FDA-Public Use
  Company Number: AU-CELGENE-AUS-20211101951

PATIENT
  Sex: Male

DRUGS (2)
  1. REVLIMID [Suspect]
     Active Substance: LENALIDOMIDE
     Indication: Plasma cell myeloma
     Dosage: 15 MILLIGRAM
     Route: 048
     Dates: start: 20210827
  2. REVLIMID [Suspect]
     Active Substance: LENALIDOMIDE
     Dosage: 10 MILLIGRAM
     Route: 048
     Dates: start: 20211105

REACTIONS (3)
  - Skin cancer [Unknown]
  - Thrombocytopenia [Unknown]
  - Anaemia [Unknown]

NARRATIVE: CASE EVENT DATE: 20210101
